FAERS Safety Report 11009111 (Version 1)
Quarter: 2015Q2

REPORT INFORMATION
  Report Type: Spontaneous
  Country: US (occurrence: None)
  Receive Date: 20150409
  Receipt Date: 20150409
  Transmission Date: 20150821
  Serious: Yes (Life-Threatening)
  Sender: FDA-Public Use
  Company Number: None

PATIENT
  Age: 18 Year
  Sex: Female
  Weight: 50.8 kg

DRUGS (3)
  1. SODIUM SULFACETAMIDE [Concomitant]
     Active Substance: SULFACETAMIDE SODIUM
  2. EPIDUO [Concomitant]
     Active Substance: ADAPALENE\BENZOYL PEROXIDE
  3. MINOCYCLINE [Suspect]
     Active Substance: MINOCYCLINE\MINOCYCLINE HYDROCHLORIDE
     Indication: ACNE
     Dates: start: 20150225, end: 20150302

REACTIONS (13)
  - Suicidal ideation [None]
  - Anxiety [None]
  - Memory impairment [None]
  - Self-injurious ideation [None]
  - Pain [None]
  - Disorientation [None]
  - Derealisation [None]
  - Depression [None]
  - Feeling abnormal [None]
  - Affect lability [None]
  - Somnolence [None]
  - Tachyphrenia [None]
  - Panic attack [None]

NARRATIVE: CASE EVENT DATE: 20150303
